FAERS Safety Report 17391290 (Version 1)
Quarter: 2020Q1

REPORT INFORMATION
  Report Type: Spontaneous
  Country: US (occurrence: US)
  Receive Date: 20200207
  Receipt Date: 20200207
  Transmission Date: 20200409
  Serious: Yes (Other)
  Sender: FDA-Public Use
  Company Number: US-ASTRAZENECA-2020SE17389

PATIENT
  Age: 60 Year
  Sex: Female

DRUGS (1)
  1. XIGDUO XR [Suspect]
     Active Substance: DAPAGLIFLOZIN PROPANEDIOL\METFORMIN HYDROCHLORIDE
     Dosage: 5/500
     Route: 048
     Dates: start: 20191128

REACTIONS (3)
  - Haematuria [Unknown]
  - Bladder cancer [Unknown]
  - Nodule [Unknown]

NARRATIVE: CASE EVENT DATE: 20191115
